FAERS Safety Report 4618333-2 (Version None)
Quarter: 2005Q1

REPORT INFORMATION
  Report Type: 
  Country: None (occurrence: None)
  Receive Date: 20050324
  Receipt Date: 20050307
  Transmission Date: 20050727
  Serious: Yes (Other)
  Sender: FDA-Public Use
  Company Number: GBS050316845

PATIENT
  Age: 47 Year
  Sex: Male
  Weight: 89 kg

DRUGS (1)
  1. ZYPREXA [Suspect]
     Indication: PSYCHOTIC DISORDER

REACTIONS (5)
  - CEREBRAL INFARCTION [None]
  - CONDITION AGGRAVATED [None]
  - NEUROSIS [None]
  - PANIC DISORDER WITH AGORAPHOBIA [None]
  - ROAD TRAFFIC ACCIDENT [None]
